FAERS Safety Report 7338739-0 (Version None)
Quarter: 2011Q1

REPORT INFORMATION
  Report Type: 
  Country: None (occurrence: None)
  Receive Date: 20110308
  Receipt Date: 20110307
  Transmission Date: 20110831
  Serious: Yes (Hospitalization)
  Sender: FDA-Public Use
  Company Number: B0704227A

PATIENT
  Age: 55 Year
  Sex: Male

DRUGS (13)
  1. PREVISCAN [Concomitant]
     Route: 065
  2. DIFFU K [Concomitant]
     Route: 065
  3. SPIRIVA [Concomitant]
     Route: 065
  4. FUROSEMIDE [Concomitant]
     Route: 065
  5. DILTIAZEM HCL [Concomitant]
     Route: 065
  6. CRESTOR [Concomitant]
     Route: 065
  7. DIGOXIN [Concomitant]
     Route: 065
  8. AUGMENTIN '125' [Suspect]
     Route: 065
     Dates: start: 20110112, end: 20110118
  9. GLUCOPHAGE [Concomitant]
     Route: 065
  10. INIPOMP [Concomitant]
     Route: 065
  11. CIFLOX [Suspect]
     Route: 065
     Dates: start: 20110112, end: 20110118
  12. OLMETEC [Concomitant]
     Route: 065
  13. SERETIDE [Concomitant]
     Route: 065

REACTIONS (3)
  - TOXIC SKIN ERUPTION [None]
  - RASH MACULO-PAPULAR [None]
  - PRURITUS [None]
